FAERS Safety Report 17153005 (Version 2)
Quarter: 2019Q4

REPORT INFORMATION
  Report Type: Report from Study
  Country: IE (occurrence: IE)
  Receive Date: 20191213
  Receipt Date: 20191230
  Transmission Date: 20200122
  Serious: Yes (Other)
  Sender: FDA-Public Use
  Company Number: IE-EMD SERONO-9134172

PATIENT
  Age: 38 Year
  Sex: Female

DRUGS (2)
  1. MAVENCLAD [Suspect]
     Active Substance: CLADRIBINE
     Dosage: WEEK FIVE THERAPY: THE PATIENT WAS PRESCRIBED TWO DOSAGE FORM ON DAY 1 AND THEN ONE DOSAGE FORM ON D
     Route: 048
     Dates: start: 20191219
  2. MAVENCLAD [Suspect]
     Active Substance: CLADRIBINE
     Indication: RELAPSING-REMITTING MULTIPLE SCLEROSIS
     Dosage: WEEK ONE THERAPY: TWO DOSAGE FORMS ON DAY 1 AND THEN ONE DOSAGE FORM ON DAYS 2 TO 5.
     Route: 048
     Dates: start: 20191111

REACTIONS (5)
  - Anxiety [Unknown]
  - Pain in extremity [Recovering/Resolving]
  - Arthralgia [Recovering/Resolving]
  - Cardiac flutter [Recovering/Resolving]
  - Kidney infection [Recovered/Resolved]

NARRATIVE: CASE EVENT DATE: 20191126
